FAERS Safety Report 9912686 (Version 1)
Quarter: 2014Q1

REPORT INFORMATION
  Report Type: Spontaneous
  Country: US (occurrence: None)
  Receive Date: 20140212
  Receipt Date: 20140212
  Transmission Date: 20141002
  Serious: Yes (Other)
  Sender: FDA-Public Use
  Company Number: SYM-2014-17151

PATIENT
  Sex: 0

DRUGS (9)
  1. FLUOROURACIL [Suspect]
     Indication: ADENOCARCINOMA PANCREAS
     Dosage: 2400 MG/M2, EVERY OTHER WEEK, INTRAVENOUS (NOT OTHERWISE SPECIFIED)
  2. IRINOTECAN [Suspect]
     Indication: ADENOCARCINOMA PANCREAS
     Dosage: 180 MG/M2, EVERY OTHER WEEK, INTRAVENOUS (NOT OTHERWISE SPECIFIED)
  3. OXALIPLATIN [Suspect]
     Indication: ADENOCARCINOMA PANCREAS
     Dosage: 85 MG/M2, EVERY OTHER WEEK, INTRAVENOUS (NOT OTHERWISE SPECIFIED)
  4. LEUCOVORIN [Suspect]
     Indication: ADENOCARCINOMA PANCREAS
     Dosage: 400 MG/M2, EVERY OTHER WEEK, INTRAVENOUS (NOT OTHERWISE SPECIFIED)
  5. SEROTONIN ANTAGONISTS [Concomitant]
  6. DEXAMETHASONE(DEXAMETHASONE)(DEXAMETHASONE) [Concomitant]
  7. DEXTROSE(GLUCOSE)(GLUCOSE) [Concomitant]
  8. KORMAL SALINE(SODIUM CHLORIDE)(SODIUM CHLORIDE) [Concomitant]
  9. PEGFILGRASTIM(PEGFILGRASTIM)(PEGFILGRASTIM) [Concomitant]

REACTIONS (2)
  - Nausea [None]
  - Vomiting [None]
